FAERS Safety Report 5555046-7 (Version None)
Quarter: 2007Q4

REPORT INFORMATION
  Report Type: 
  Country: None (occurrence: None)
  Receive Date: 20071213
  Receipt Date: 20071129
  Transmission Date: 20080405
  Serious: Yes (Other)
  Sender: FDA-Public Use
  Company Number: US-BAYER-200715272NA

PATIENT
  Age: 38 Year
  Sex: Female
  Weight: 87 kg

DRUGS (1)
  1. MIRENA [Suspect]
     Indication: CONTRACEPTION
     Dosage: TOTAL DAILY DOSE: 20 ?G
     Route: 015
     Dates: start: 20071129, end: 20071129

REACTIONS (1)
  - SYNCOPE VASOVAGAL [None]
